FAERS Safety Report 15121450 (Version 5)
Quarter: 2018Q4

REPORT INFORMATION
  Report Type: Spontaneous
  Country: PL (occurrence: PL)
  Receive Date: 20180709
  Receipt Date: 20181227
  Transmission Date: 20190204
  Serious: Yes (Hospitalization, Other)
  Sender: FDA-Public Use
  Company Number: PL-MYLANLABS-2018M1047794

PATIENT
  Age: 17 Year
  Sex: Female

DRUGS (8)
  1. PARACETAMOL [Suspect]
     Active Substance: ACETAMINOPHEN
     Indication: PAIN
     Dosage: 500 MG, TID
     Route: 048
  2. PARACETAMOL [Suspect]
     Active Substance: ACETAMINOPHEN
     Indication: BACK PAIN
  3. DICLOFENAC [Suspect]
     Active Substance: DICLOFENAC
     Indication: BACK PAIN
  4. DICLOFENAC [Suspect]
     Active Substance: DICLOFENAC
     Indication: PAIN
     Dosage: 50 MG, BID (100 MG, QD)
     Route: 065
  5. DICLOFENAC [Suspect]
     Active Substance: DICLOFENAC
     Indication: INJURY
     Dosage: 50 MG, PRN
     Route: 065
  6. KETONAL                            /00321701/ [Suspect]
     Active Substance: KETOPROFEN
     Indication: PAIN
     Dosage: 100 MG, BID (200 MG, QD)
     Route: 065
  7. KETONAL                            /00321701/ [Suspect]
     Active Substance: KETOPROFEN
     Indication: INJURY
  8. KETONAL                            /00321701/ [Suspect]
     Active Substance: KETOPROFEN
     Indication: BACK PAIN

REACTIONS (20)
  - Staphylococcal sepsis [Recovered/Resolved]
  - Inflammation [Recovering/Resolving]
  - Pallor [Recovering/Resolving]
  - Staphylococcal infection [Recovering/Resolving]
  - Skin turgor decreased [Recovering/Resolving]
  - Back pain [Recovering/Resolving]
  - Nausea [Recovering/Resolving]
  - Asthenia [Recovering/Resolving]
  - Urinary retention [Recovering/Resolving]
  - Urinary hesitation [Recovering/Resolving]
  - Acute kidney injury [Recovered/Resolved]
  - Nerve compression [Recovering/Resolving]
  - Respiratory rate increased [Recovering/Resolving]
  - Subcutaneous abscess [Recovering/Resolving]
  - Abdominal tenderness [Recovering/Resolving]
  - Dry mouth [Recovering/Resolving]
  - Emotional distress [Recovering/Resolving]
  - Chromaturia [Recovering/Resolving]
  - Dehydration [Recovering/Resolving]
  - Pyrexia [Recovering/Resolving]
